FAERS Safety Report 15240461 (Version 3)
Quarter: 2019Q1

REPORT INFORMATION
  Report Type: Spontaneous
  Country: GB (occurrence: GB)
  Receive Date: 20180804
  Receipt Date: 20190129
  Transmission Date: 20190417
  Serious: Yes (Life-Threatening, Hospitalization, Other)
  Sender: FDA-Public Use
  Company Number: GB-TORRENT-00016964

PATIENT
  Age: 21 Year
  Sex: Male

DRUGS (5)
  1. COCAINE [Suspect]
     Active Substance: COCAINE
     Indication: PRODUCT USED FOR UNKNOWN INDICATION
     Dosage: TAKEN TOGETHER WITH OBERACETAM BY SNORTING. POWDER
     Route: 045
  2. NOOPEPT [Suspect]
     Active Substance: OMBERACETAM
     Indication: PRODUCT USED FOR UNKNOWN INDICATION
     Dosage: TAKEN TOGETHER WITH COCAINE BY SNORTING.?OBERACETAM POWDER. POWDER
     Route: 045
  3. RISPERIDONE. [Suspect]
     Active Substance: RISPERIDONE
     Indication: PRODUCT USED FOR UNKNOWN INDICATION
     Dosage: UNKNOWN
  4. DULOXETINE. [Suspect]
     Active Substance: DULOXETINE
     Indication: PRODUCT USED FOR UNKNOWN INDICATION
     Dosage: UNKNOWN
  5. DIAZEPAM. [Suspect]
     Active Substance: DIAZEPAM
     Indication: PRODUCT USED FOR UNKNOWN INDICATION
     Dosage: UNKNOWN

REACTIONS (14)
  - Drug abuse [Unknown]
  - Palpitations [Unknown]
  - Substance use [Unknown]
  - Hypotension [Unknown]
  - Ventricular extrasystoles [Unknown]
  - Dystonia [Recovered/Resolved]
  - Sinus tachycardia [Recovering/Resolving]
  - Somnolence [Unknown]
  - Overdose [Unknown]
  - Muscle twitching [Recovered/Resolved]
  - Coma scale abnormal [Unknown]
  - Toxicity to various agents [Recovered/Resolved]
  - Facial spasm [Recovered/Resolved]
  - Extrasystoles [Unknown]
